FAERS Safety Report 7637683 (Version 4)
Quarter: 2013Q1

REPORT INFORMATION
  Report Type: Spontaneous
  Country: US (occurrence: US)
  Receive Date: 20101022
  Receipt Date: 20130311
  Transmission Date: 20140127
  Serious: Yes (Hospitalization, Other)
  Sender: FDA-Public Use
  Company Number: US-ROCHE-733696

PATIENT
  Age: 32 Year
  Sex: Female
  Weight: 58.5 kg

DRUGS (4)
  1. ACCUTANE [Suspect]
     Indication: ACNE
     Route: 048
     Dates: start: 20011101, end: 20011114
  2. ACCUTANE [Suspect]
     Dosage: INCREASED TO 40 MG BID ON EVEN DAYS ALTERNATING WITH 40 MG QD ON ODD
     Route: 048
     Dates: start: 20011115, end: 20020109
  3. ACCUTANE [Suspect]
     Dosage: INCREASED TO 40 MG BID ON WEEK DAYS AND 40 MG QD ON WEEKEND
     Route: 048
     Dates: start: 20020110, end: 20020306
  4. ACCUTANE [Suspect]
     Route: 048
     Dates: start: 20020307, end: 20020325

REACTIONS (15)
  - Colitis ulcerative [Unknown]
  - Inflammatory bowel disease [Unknown]
  - Diverticulum [Unknown]
  - Colitis ischaemic [Unknown]
  - Clostridium difficile colitis [Unknown]
  - Diverticulitis [Unknown]
  - Depression [Unknown]
  - Irritable bowel syndrome [Unknown]
  - Dry skin [Unknown]
  - Lip dry [Unknown]
  - Arthralgia [Unknown]
  - Pruritus [Unknown]
  - Erythema [Unknown]
  - Eye irritation [Unknown]
  - Alopecia [Unknown]
